FAERS Safety Report 5158482-6 (Version None)
Quarter: 2006Q4

REPORT INFORMATION
  Report Type: 
  Country: None (occurrence: None)
  Receive Date: 20061116
  Receipt Date: 20060915
  Transmission Date: 20070319
  Serious: Yes (Disabling, Other)
  Sender: FDA-Public Use
  Company Number: 2003-07-1160

PATIENT
  Age: 64 Year
  Sex: Male

DRUGS (7)
  1. BETAMETHASONE [Suspect]
     Indication: CHRONIC LYMPHOCYTIC LEUKAEMIA
     Dosage: 1 MG; QD; PO
     Route: 048
     Dates: start: 19990401, end: 19990901
  2. BETAMETHASONE [Suspect]
     Indication: CHRONIC LYMPHOCYTIC LEUKAEMIA
     Dosage: 1 MG; QD; PO
     Route: 048
     Dates: start: 19990102
  3. RENITEC (CON) [Concomitant]
  4. MOPRAL (CON) [Concomitant]
  5. KALEORID (CON) [Concomitant]
  6. SURBRONC (CON) [Concomitant]
  7. ANTIBIOTICS (CON) [Concomitant]

REACTIONS (18)
  - ARTHRALGIA [None]
  - ASTHENIA [None]
  - COLON CANCER [None]
  - DEPENDENCE [None]
  - DIVERTICULITIS [None]
  - INFECTION IN AN IMMUNOCOMPROMISED HOST [None]
  - INTERVERTEBRAL DISC PROTRUSION [None]
  - LUNG INFECTION [None]
  - MENTAL DISORDER [None]
  - MYALGIA [None]
  - OEDEMA PERIPHERAL [None]
  - OSTEOPOROSIS [None]
  - PAIN [None]
  - PELVIC ABSCESS [None]
  - PHLEBITIS [None]
  - SECONDARY ADRENOCORTICAL INSUFFICIENCY [None]
  - STEROID WITHDRAWAL SYNDROME [None]
  - WEIGHT INCREASED [None]
